FAERS Safety Report 7623767-8 (Version None)
Quarter: 2011Q3

REPORT INFORMATION
  Report Type: 
  Country: None (occurrence: None)
  Receive Date: 20110720
  Receipt Date: 20110712
  Transmission Date: 20111222
  Serious: Yes (Other)
  Sender: FDA-Public Use
  Company Number: JP-GLAXOSMITHKLINE-B0733252A

PATIENT
  Age: 19 Year
  Sex: Male

DRUGS (3)
  1. CLONAZEPAM [Concomitant]
     Route: 048
  2. LAMICTAL [Suspect]
     Indication: EPILEPSY
     Dosage: 200MG PER DAY
     Route: 048
     Dates: start: 20090101
  3. DEPAKENE [Concomitant]
     Route: 048

REACTIONS (1)
  - GUILLAIN-BARRE SYNDROME [None]
